FAERS Safety Report 6407966-9 (Version None)
Quarter: 2009Q4

REPORT INFORMATION
  Report Type: 
  Country: None (occurrence: None)
  Receive Date: 20091016
  Receipt Date: 20090930
  Transmission Date: 20100525
  Serious: Yes (Other)
  Sender: FDA-Public Use
  Company Number: TPA2009A02882

PATIENT
  Age: 84 Year
  Sex: Female

DRUGS (10)
  1. ULORIC [Suspect]
     Indication: GOUT
     Dosage: 40 MG, 1 IN 1 D, PER ORAL
     Route: 048
     Dates: start: 20090918, end: 20090923
  2. SEASONAL INFLUENZA INJECTION (INFLUENZA VACCINE) [Suspect]
     Indication: ANTIVIRAL PROPHYLAXIS
     Dosage: ONCE, INJECTION
     Dates: start: 20090918, end: 20090918
  3. COLCHICINE (COLCHICINE) [Concomitant]
  4. PREDNISONE TAB [Concomitant]
  5. ENALAPRIL MALEATE [Concomitant]
  6. AMLODIPINE [Concomitant]
  7. CARVEDILOL [Concomitant]
  8. ASPIRIN [Concomitant]
  9. GABAPENTIN [Concomitant]
  10. LASIX [Concomitant]

REACTIONS (3)
  - BLOOD GLUCOSE INCREASED [None]
  - CHAPPED LIPS [None]
  - VASCULITIS [None]
